FAERS Safety Report 23995521 (Version 1)
Quarter: 2024Q2

REPORT INFORMATION
  Report Type: Spontaneous
  Country: US (occurrence: None)
  Receive Date: 20240612
  Receipt Date: 20240612
  Transmission Date: 20240716
  Serious: Yes (Other)
  Sender: FDA-Public Use
  Company Number: None

PATIENT
  Sex: 0

DRUGS (2)
  1. AMANITA MUSCARIA WHOLE\HERBALS [Suspect]
     Active Substance: AMANITA MUSCARIA WHOLE\HERBALS
     Dosage: OTHER QUANTITY : 1 GUMMY?
     Dates: start: 20240606, end: 20240606
  2. .DELTA.9-TETRAHYDROCANNABINOL\HERBALS [Suspect]
     Active Substance: .DELTA.9-TETRAHYDROCANNABINOL\HERBALS

REACTIONS (2)
  - Lethargy [None]
  - Drug screen positive [None]

NARRATIVE: CASE EVENT DATE: 20240607
